FAERS Safety Report 8949559 (Version 2)
Quarter: 2013Q1

REPORT INFORMATION
  Report Type: Spontaneous
  Country: US (occurrence: US)
  Receive Date: 20121206
  Receipt Date: 20130220
  Transmission Date: 20140127
  Serious: Yes (Hospitalization)
  Sender: FDA-Public Use
  Company Number: US-MILLENNIUM PHARMACEUTICALS, INC.-2012-08526

PATIENT
  Age: 51 Year
  Sex: Male
  Weight: 242.18 kg

DRUGS (3)
  1. VELCADE [Suspect]
     Indication: PLASMA CELL MYELOMA
     Dosage: 3.5 MG, UNK
     Route: 040
     Dates: start: 20110329, end: 20120103
  2. DECADRON                           /00016001/ [Suspect]
     Indication: PLASMA CELL MYELOMA
     Dosage: 40 MG, 1/WEEK
     Route: 048
     Dates: start: 20120103, end: 20120103
  3. CYTOXAN [Suspect]
     Indication: PLASMA CELL MYELOMA

REACTIONS (1)
  - Chest pain [Recovered/Resolved]
